FAERS Safety Report 14554012 (Version 1)
Quarter: 2018Q1

REPORT INFORMATION
  Report Type: Spontaneous
  Country: US (occurrence: US)
  Receive Date: 20180217
  Receipt Date: 20180217
  Transmission Date: 20180509
  Serious: No
  Sender: FDA-Public Use
  Company Number: None

PATIENT
  Sex: Male

DRUGS (1)
  1. HUMIRA [Suspect]
     Active Substance: ADALIMUMAB
     Indication: ANKYLOSING SPONDYLITIS
     Dosage: 40MG (1 PEN) EVERY 2 WEEKS SUBCUTANEOUSLY
     Route: 058
     Dates: start: 20160603

REACTIONS (2)
  - Rash [None]
  - Tinea infection [None]
